FAERS Safety Report 6745729-5 (Version None)
Quarter: 2010Q2

REPORT INFORMATION
  Report Type: 
  Country: None (occurrence: None)
  Receive Date: 20100528
  Receipt Date: 20100518
  Transmission Date: 20101027
  Serious: Yes (Hospitalization)
  Sender: FDA-Public Use
  Company Number: PHHY2010US32459

PATIENT
  Sex: Female
  Weight: 78 kg

DRUGS (4)
  1. ENABLEX [Suspect]
     Indication: HYPERTONIC BLADDER
     Dosage: 7.5 MG
     Route: 048
     Dates: start: 20090916
  2. ENABLEX [Suspect]
     Dosage: 15 MG
     Route: 048
     Dates: start: 20091211, end: 20100301
  3. MACRODANTIN [Concomitant]
     Indication: PROPHYLAXIS
  4. ANTICHOLINERGICS [Concomitant]

REACTIONS (3)
  - IMPAIRED GASTRIC EMPTYING [None]
  - STRESS URINARY INCONTINENCE [None]
  - SURGERY [None]
